FAERS Safety Report 24086422 (Version 1)
Quarter: 2024Q3

REPORT INFORMATION
  Report Type: Spontaneous
  Country: KR (occurrence: None)
  Receive Date: 20240712
  Receipt Date: 20240712
  Transmission Date: 20241017
  Serious: Yes (Death)
  Sender: ASTRAZENECA
  Company Number: 2024A159961

PATIENT
  Sex: Male

DRUGS (1)
  1. IMFINZI [Suspect]
     Active Substance: DURVALUMAB
     Dosage: 500MG / 3VIAL500.0MG UNKNOWN
     Dates: start: 20240415

REACTIONS (2)
  - Cardio-respiratory arrest [Fatal]
  - Gallbladder cancer [Fatal]
